FAERS Safety Report 24289244 (Version 1)
Quarter: 2024Q3

REPORT INFORMATION
  Report Type: Spontaneous
  Country: ES (occurrence: ES)
  Receive Date: 20240906
  Receipt Date: 20240906
  Transmission Date: 20241017
  Serious: Yes (Other)
  Sender: ACCORD
  Company Number: ES-MLMSERVICE-20240821-PI166152-00165-1

PATIENT
  Age: 61 Year
  Sex: Male

DRUGS (5)
  1. GEMCITABINE [Suspect]
     Active Substance: GEMCITABINE
     Indication: Ascites
     Dates: start: 202206, end: 202302
  2. PACLITAXEL [Suspect]
     Active Substance: PACLITAXEL
     Indication: Pancreatic carcinoma recurrent
     Dates: start: 202206, end: 202302
  3. PREDNISONE [Concomitant]
     Active Substance: PREDNISONE
     Indication: Ascites
     Dosage: SHORT 3-DAY CYCLES
     Dates: start: 2023, end: 2023
  4. PACLITAXEL [Suspect]
     Active Substance: PACLITAXEL
     Indication: Metastases to peritoneum
     Dates: start: 202206, end: 202302
  5. GEMCITABINE [Suspect]
     Active Substance: GEMCITABINE
     Indication: Adenocarcinoma pancreas
     Dates: start: 202206, end: 202302

REACTIONS (2)
  - Leukopenia [Unknown]
  - Off label use [Unknown]
